FAERS Safety Report 10101228 (Version 1)
Quarter: 2014Q2

REPORT INFORMATION
  Report Type: Spontaneous
  Country: US (occurrence: None)
  Receive Date: 20140422
  Receipt Date: 20140422
  Transmission Date: 20141212
  Serious: Yes (Death)
  Sender: FDA-Public Use
  Company Number: ADR-2014-00652

PATIENT
  Age: 63 Year
  Sex: Male

DRUGS (4)
  1. BACLOFEN 150.0 MCG/ML [Suspect]
  2. DILAUDID (INTRATHECAL) 5.0MG/ML [Suspect]
     Indication: CANCER PAIN
  3. BUPIVACAINE (INTRATHECAL) 30 MG/ML [Suspect]
  4. CLONIDINE (INTRATHECAL) 300.0 UG/ML [Suspect]

REACTIONS (2)
  - Malignant neoplasm progression [None]
  - Lung neoplasm malignant [None]
